FAERS Safety Report 5854841-4 (Version None)
Quarter: 2008Q3

REPORT INFORMATION
  Report Type: 
  Country: None (occurrence: None)
  Receive Date: 20080822
  Receipt Date: 20080225
  Transmission Date: 20090109
  Serious: No
  Sender: FDA-Public Use
  Company Number: US-ABBOTT-08P-163-0439735-00

PATIENT
  Sex: Male
  Weight: 77 kg

DRUGS (8)
  1. SYNTHROID [Suspect]
     Indication: HYPOTHYROIDISM
     Route: 048
     Dates: start: 20080207, end: 20080209
  2. SYNTHROID [Suspect]
     Route: 048
     Dates: start: 20080205, end: 20080206
  3. SYNTHROID [Suspect]
     Route: 048
     Dates: start: 20080211
  4. SYNTHROID [Suspect]
     Indication: HYPOTHYROIDISM
     Dates: start: 20030101
  5. SYNTHROID [Suspect]
     Indication: HYPOTHYROIDISM
     Route: 048
     Dates: end: 20080205
  6. AMITRIPTYLINE HYDROCHLORIDE [Concomitant]
     Indication: GASTRIC DISORDER
     Route: 048
  7. ESOMEPRAZOLE MAGNESIUM [Concomitant]
     Indication: GASTRIC DISORDER
     Route: 048
  8. VITAMIN E [Concomitant]
     Indication: VITAMIN SUPPLEMENTATION
     Route: 048

REACTIONS (2)
  - INCORRECT DOSE ADMINISTERED [None]
  - TREMOR [None]
